FAERS Safety Report 8063479-2 (Version None)
Quarter: 2012Q1

REPORT INFORMATION
  Report Type: 
  Country: None (occurrence: None)
  Receive Date: 20120123
  Receipt Date: 20120111
  Transmission Date: 20120608
  Serious: Yes (Other)
  Sender: FDA-Public Use
  Company Number: PHHY2012FR002961

PATIENT
  Sex: Female

DRUGS (4)
  1. RASILEZ [Suspect]
     Indication: HYPERTENSION
     Dosage: 150 MG, QD
  2. ANGIOTENSIN II ANTAGONISTS [Concomitant]
  3. RASILEZ [Suspect]
     Dosage: 300 MG, QD
     Dates: start: 20110606, end: 20110701
  4. RASILEZ [Suspect]
     Dosage: 150 MG, QD
     Dates: start: 20110901

REACTIONS (7)
  - CARDIAC FAILURE [None]
  - RENAL FAILURE ACUTE [None]
  - BLOOD CREATININE INCREASED [None]
  - OEDEMA PERIPHERAL [None]
  - BLOOD PRESSURE INCREASED [None]
  - PULMONARY OEDEMA [None]
  - BLOOD POTASSIUM INCREASED [None]
